FAERS Safety Report 16973599 (Version 1)
Quarter: 2019Q4

REPORT INFORMATION
  Report Type: Spontaneous
  Country: US (occurrence: US)
  Receive Date: 20191030
  Receipt Date: 20191030
  Transmission Date: 20200122
  Serious: No
  Sender: FDA-Public Use
  Company Number: US-MYLANLABS-2019M1092260

PATIENT
  Sex: Female

DRUGS (3)
  1. GABAPENTIN. [Concomitant]
     Active Substance: GABAPENTIN
     Dosage: 4000 MILLIGRAM, QD
  2. FENTANYL TRANSDERMAL SYSTEM [Suspect]
     Active Substance: FENTANYL
     Indication: BACK INJURY
     Dosage: 50 MICROGRAM, Q2D
     Route: 062
     Dates: start: 20190903
  3. TIZANIDINE. [Concomitant]
     Active Substance: TIZANIDINE
     Dosage: UNK

REACTIONS (5)
  - Drug ineffective [Not Recovered/Not Resolved]
  - Tinnitus [Not Recovered/Not Resolved]
  - Wrong technique in product usage process [Recovering/Resolving]
  - Pruritus [Not Recovered/Not Resolved]
  - Product adhesion issue [Recovering/Resolving]
